FAERS Safety Report 23015359 (Version 1)
Quarter: 2023Q4

REPORT INFORMATION
  Report Type: Spontaneous
  Country: US (occurrence: None)
  Receive Date: 20231002
  Receipt Date: 20231002
  Transmission Date: 20240109
  Serious: Yes (Hospitalization)
  Sender: FDA-Public Use
  Company Number: None

PATIENT
  Age: 75 Year
  Sex: Male

DRUGS (5)
  1. AMBRISENTAN [Suspect]
     Active Substance: AMBRISENTAN
  2. NARCAN [Concomitant]
  3. VITAMIN B12 [Concomitant]
     Active Substance: CYANOCOBALAMIN
  4. FAMOTIDINE [Concomitant]
  5. LORATADINE [Concomitant]

REACTIONS (4)
  - Fall [None]
  - Contusion [None]
  - Haematoma [None]
  - Hypoxia [None]

NARRATIVE: CASE EVENT DATE: 20230926
